FAERS Safety Report 9847825 (Version 1)
Quarter: 2014Q1

REPORT INFORMATION
  Report Type: Spontaneous
  Country: US (occurrence: US)
  Receive Date: 20140128
  Receipt Date: 20140128
  Transmission Date: 20141002
  Serious: No
  Sender: FDA-Public Use
  Company Number: US-BIOGENIDEC-2014BI006741

PATIENT
  Sex: Female

DRUGS (5)
  1. TECFIDERA [Suspect]
     Indication: MULTIPLE SCLEROSIS
     Route: 048
     Dates: end: 201309
  2. VITAMIN D [Concomitant]
  3. GABAPENTIN [Concomitant]
  4. PROZAC [Concomitant]
  5. WELLBUTRIN [Concomitant]

REACTIONS (2)
  - Depression [Unknown]
  - Depressed mood [Unknown]
